FAERS Safety Report 8473179-2 (Version None)
Quarter: 2012Q2

REPORT INFORMATION
  Report Type: 
  Country: None (occurrence: None)
  Receive Date: 20120627
  Receipt Date: 20120619
  Transmission Date: 20120825
  Serious: Yes (Other)
  Sender: FDA-Public Use
  Company Number: PHHY2012US053461

PATIENT
  Age: 61 Year
  Sex: Female

DRUGS (1)
  1. BUFFERIN [Suspect]
     Dosage: 1 DF, ONCE/SINGLE
     Route: 048
     Dates: start: 19600101

REACTIONS (2)
  - MIGRAINE [None]
  - SUICIDE ATTEMPT [None]
